FAERS Safety Report 4784659-5 (Version None)
Quarter: 2005Q3

REPORT INFORMATION
  Report Type: 
  Country: None (occurrence: None)
  Receive Date: 20050928
  Receipt Date: 20050919
  Transmission Date: 20060218
  Serious: Yes (Death, Hospitalization)
  Sender: FDA-Public Use
  Company Number: 230138M05USA

PATIENT
  Age: 34 Year
  Sex: Male
  Weight: 158.759 kg

DRUGS (8)
  1. REBIF [Suspect]
     Indication: MULTIPLE SCLEROSIS
     Dosage: 44 MCG, 3 IN 1 WEEKS, SUBCUTANEOUS
     Route: 058
     Dates: start: 20041101, end: 20050509
  2. BACLOFEN [Concomitant]
  3. NEURONTIN [Concomitant]
  4. SOLU-MEDROL [Concomitant]
  5. VICODIN [Concomitant]
  6. OXYCODONE HCL [Concomitant]
  7. ADVIL [Concomitant]
  8. XANAX [Concomitant]

REACTIONS (23)
  - ASEPTIC NECROSIS BONE [None]
  - BACK PAIN [None]
  - BRADYCARDIA [None]
  - CARDIAC ARREST [None]
  - CULTURE URINE POSITIVE [None]
  - DIFFICULTY IN WALKING [None]
  - DIZZINESS [None]
  - DYSURIA [None]
  - FALL [None]
  - HAEMATEMESIS [None]
  - HYPERHIDROSIS [None]
  - MYOCARDIAL INFARCTION [None]
  - PAIN IN EXTREMITY [None]
  - PROTEUS INFECTION [None]
  - PULMONARY EMBOLISM [None]
  - PULMONARY OEDEMA [None]
  - PULMONARY VASCULAR DISORDER [None]
  - PULSE ABSENT [None]
  - RESPIRATORY ARREST [None]
  - TACHYCARDIA [None]
  - URINARY RETENTION [None]
  - URINARY TRACT INFECTION [None]
  - VOMITING [None]
